FAERS Safety Report 24252715 (Version 3)
Quarter: 2025Q4

REPORT INFORMATION
  Report Type: Report from Study
  Country: EU (occurrence: EU)
  Receive Date: 20240827
  Receipt Date: 20251216
  Transmission Date: 20260117
  Serious: Yes (Other)
  Sender: NOVARTIS
  Company Number: EU-002147023-NVSC2024IE171520

PATIENT
  Age: 20 Year
  Sex: Female

DRUGS (2)
  1. COSENTYX [Suspect]
     Active Substance: SECUKINUMAB
     Indication: Ankylosing spondylitis
     Dosage: 300 MG, QMO (INJECTION)
     Route: 050
     Dates: start: 20240416
  2. COSENTYX [Suspect]
     Active Substance: SECUKINUMAB
     Indication: Axial spondyloarthritis
     Dosage: 150 MG, Q2W (EVERY SECOND WEEK) (INJECTION)
     Route: 050
     Dates: start: 20240423

REACTIONS (3)
  - Lower respiratory tract infection [Not Recovered/Not Resolved]
  - Influenza [Recovered/Resolved]
  - Cough [Recovered/Resolved]

NARRATIVE: CASE EVENT DATE: 20240817
